FAERS Safety Report 20456695 (Version 1)
Quarter: 2022Q1

REPORT INFORMATION
  Report Type: Spontaneous
  Country: US (occurrence: US)
  Receive Date: 20220210
  Receipt Date: 20220210
  Transmission Date: 20220423
  Serious: No
  Sender: FDA-Public Use
  Company Number: US-BAUSCH-BL-2022-004113

PATIENT
  Age: 79 Year
  Sex: Male

DRUGS (2)
  1. XIFAXAN [Suspect]
     Active Substance: RIFAXIMIN
     Indication: Liver disorder
     Route: 048
     Dates: start: 202109
  2. XIFAXAN [Suspect]
     Active Substance: RIFAXIMIN
     Route: 048
     Dates: start: 202201

REACTIONS (2)
  - Diarrhoea [Recovered/Resolved]
  - Inappropriate schedule of product administration [Unknown]

NARRATIVE: CASE EVENT DATE: 20211101
